FAERS Safety Report 7656097-9 (Version None)
Quarter: 2011Q3

REPORT INFORMATION
  Report Type: 
  Country: None (occurrence: None)
  Receive Date: 20110804
  Receipt Date: 20110801
  Transmission Date: 20111222
  Serious: Yes (Other)
  Sender: FDA-Public Use
  Company Number: FR-ROCHE-794010

PATIENT
  Sex: Female

DRUGS (9)
  1. TEGRETOL [Suspect]
     Route: 048
     Dates: start: 20110616, end: 20110718
  2. DIPRIVAN [Suspect]
     Route: 042
     Dates: start: 20110702, end: 20110715
  3. PHENOXYMETHYL PENICILLIN [Concomitant]
  4. CLONAZEPAM [Suspect]
     Route: 065
  5. BACTRIM [Suspect]
     Route: 042
     Dates: end: 20110717
  6. VIMPAT [Concomitant]
  7. VALACYCLOVIR HYDROCHLORIDE [Concomitant]
  8. OMEPRAZOLE [Concomitant]
  9. KEPPRA [Concomitant]

REACTIONS (4)
  - CYTOLYTIC HEPATITIS [None]
  - ASPARTATE AMINOTRANSFERASE INCREASED [None]
  - CHOLESTASIS [None]
  - ALANINE AMINOTRANSFERASE INCREASED [None]
